FAERS Safety Report 21122249 (Version 1)
Quarter: 2022Q3

REPORT INFORMATION
  Report Type: Spontaneous
  Country: FR (occurrence: FR)
  Receive Date: 20220722
  Receipt Date: 20220722
  Transmission Date: 20221027
  Serious: Yes (Death, Other)
  Sender: FDA-Public Use
  Company Number: FR-CELLTRION INC.-2022FR011585

PATIENT

DRUGS (7)
  1. RITUXIMAB [Suspect]
     Active Substance: RITUXIMAB
     Indication: Chronic lymphocytic leukaemia
     Route: 065
  2. METHYLPREDNISOLONE [Suspect]
     Active Substance: METHYLPREDNISOLONE
     Indication: Product used for unknown indication
     Dosage: FOR 3 DAYS
  3. AMPHOTERICIN B [Concomitant]
     Active Substance: AMPHOTERICIN B
  4. CEFOTAXIME [Concomitant]
     Active Substance: CEFOTAXIME SODIUM
  5. AMOXICILLIN [Concomitant]
     Active Substance: AMOXICILLIN
  6. ACYCLOVIR [Concomitant]
     Active Substance: ACYCLOVIR
     Dosage: EVERY 8 HOURS
  7. GENTAMICIN [Concomitant]
     Active Substance: GENTAMICIN

REACTIONS (2)
  - Central nervous system vasculitis [Fatal]
  - Cerebral aspergillosis [Fatal]
